FAERS Safety Report 5299704-0 (Version None)
Quarter: 2007Q2

REPORT INFORMATION
  Report Type: 
  Country: None (occurrence: None)
  Receive Date: 20070417
  Receipt Date: 20070412
  Transmission Date: 20071010
  Serious: Yes (Hospitalization)
  Sender: FDA-Public Use
  Company Number: JP-ABBOTT-07P-087-0361172-00

PATIENT
  Sex: Male

DRUGS (20)
  1. NORVIR [Suspect]
     Indication: HIV INFECTION
     Route: 048
     Dates: start: 20050610
  2. STAVUDINE [Suspect]
     Indication: HIV INFECTION
     Route: 048
     Dates: start: 20050610
  3. ATAZANAVIR SULFATE [Suspect]
     Indication: HIV INFECTION
     Route: 048
     Dates: start: 20050610
  4. LAMIVUDINE [Concomitant]
     Indication: HIV INFECTION
     Route: 048
     Dates: start: 20050610
  5. CLARITHROMYCIN [Concomitant]
     Indication: DIFFUSE PANBRONCHIOLITIS
     Route: 048
     Dates: start: 20050401
  6. THEOPHYLLINE [Concomitant]
     Indication: DIFFUSE PANBRONCHIOLITIS
     Route: 048
     Dates: start: 20050401
  7. AMBROXOL HYDROCHLORIDE [Concomitant]
     Indication: DIFFUSE PANBRONCHIOLITIS
     Route: 048
     Dates: start: 20050401
  8. L-CARBOCISTEINE [Concomitant]
     Indication: DIFFUSE PANBRONCHIOLITIS
     Route: 048
     Dates: start: 20050401
  9. CLENBUTEROL HYDROCHLORIDE [Concomitant]
     Indication: DIFFUSE PANBRONCHIOLITIS
     Route: 048
     Dates: start: 20050401
  10. TULOBUTEROL [Concomitant]
     Indication: DIFFUSE PANBRONCHIOLITIS
     Route: 061
     Dates: start: 20050401
  11. SALMETEROL XINAFOATE [Concomitant]
     Indication: DIFFUSE PANBRONCHIOLITIS
     Route: 055
     Dates: start: 20050401
  12. IPRATROPIUM BROMIDE HYDRATE [Concomitant]
     Indication: DIFFUSE PANBRONCHIOLITIS
     Dosage: 1 - 2 TIMES/DAY
     Route: 055
     Dates: start: 20050401
  13. PRANLUKAST HYDRATE [Concomitant]
     Indication: DIFFUSE PANBRONCHIOLITIS
     Route: 048
     Dates: start: 20050401
  14. CIPROFLOXACIN [Concomitant]
     Indication: DIFFUSE PANBRONCHIOLITIS
     Route: 042
     Dates: start: 20050411, end: 20050425
  15. TOBRAMYCIN [Concomitant]
     Indication: DIFFUSE PANBRONCHIOLITIS
     Route: 042
     Dates: start: 20050411, end: 20050425
  16. TOBRAMYCIN [Concomitant]
  17. FOSFOMYCIN [Concomitant]
     Indication: DIFFUSE PANBRONCHIOLITIS
     Route: 042
     Dates: start: 20050415, end: 20050425
  18. FUROSEMIDE [Concomitant]
     Indication: CARDIAC FAILURE
     Route: 042
     Dates: start: 20060331, end: 20060331
  19. OXYGEN [Concomitant]
     Indication: DIFFUSE PANBRONCHIOLITIS
     Dosage: 1-1.5 L/MIN
     Route: 055
     Dates: start: 20050401, end: 20050410
  20. OXYGEN [Concomitant]
     Dosage: 2.5 - 4 L/MIN
     Route: 055
     Dates: start: 20050411, end: 20051001

REACTIONS (3)
  - BLOOD BILIRUBIN INCREASED [None]
  - BLOOD TRIGLYCERIDES INCREASED [None]
  - DIFFUSE PANBRONCHIOLITIS [None]
